FAERS Safety Report 25554855 (Version 1)
Quarter: 2025Q3

REPORT INFORMATION
  Report Type: Spontaneous
  Country: US (occurrence: US)
  Receive Date: 20250715
  Receipt Date: 20250715
  Transmission Date: 20251020
  Serious: Yes (Hospitalization, Other)
  Sender: SUNOVION
  Company Number: US-SUMITOMO PHARMA SWITZERLAND GMBH-2024SPA005293

PATIENT

DRUGS (1)
  1. ORGOVYX [Suspect]
     Active Substance: RELUGOLIX
     Indication: Prostate cancer
     Dosage: 120 MG, QD; /TAKE ONE TABLET (120 MG) BY MOUTH ONCE DAILY AROUND THE SAME TIME EACH DAY , SWALLOW WH
     Route: 048

REACTIONS (2)
  - Cardiac operation [Unknown]
  - Off label use [Unknown]
